FAERS Safety Report 15299013 (Version 2)
Quarter: 2018Q3

REPORT INFORMATION
  Report Type: Spontaneous
  Country: CA (occurrence: CA)
  Receive Date: 20180821
  Receipt Date: 20180829
  Transmission Date: 20181010
  Serious: Yes (Other)
  Sender: FDA-Public Use
  Company Number: CA-CELLTRION INC.-2016CA014392

PATIENT

DRUGS (9)
  1. INFLECTRA [Suspect]
     Active Substance: INFLIXIMAB-DYYB
     Indication: PSORIATIC ARTHROPATHY
     Dosage: 225 MG, CYCLIC (EVERY 2, 6 WEEKS, THEN EVERY 8 WEEKS FOR 12 MONTHS)
     Route: 042
     Dates: start: 20161215
  2. VITAMIN B12 [Concomitant]
     Active Substance: CYANOCOBALAMIN
     Dosage: UNK
  3. VITAMIN D                          /00107901/ [Concomitant]
     Active Substance: ERGOCALCIFEROL
     Dosage: UNK
  4. INFLECTRA [Suspect]
     Active Substance: INFLIXIMAB-DYYB
     Dosage: 225 MG, EVERY 6 WEEKS
     Route: 042
     Dates: start: 20180809
  5. PROMETRIUM [Concomitant]
     Active Substance: PROGESTERONE
     Dosage: 100 MG, 1X/DAY
  6. INFLECTRA [Suspect]
     Active Substance: INFLIXIMAB-DYYB
     Dosage: 225 MG, EVERY 6 WEEKS
  7. CALCIUM [Concomitant]
     Active Substance: CALCIUM
     Dosage: 800 MG, UNK
  8. INFLECTRA [Suspect]
     Active Substance: INFLIXIMAB-DYYB
     Dosage: 225 MG, EVERY 6 WEEKS
     Route: 042
     Dates: start: 20180111
  9. ESTRACE [Concomitant]
     Active Substance: ESTRADIOL
     Dosage: 37.5 MG, UNK

REACTIONS (21)
  - Constipation [Unknown]
  - Blood pressure fluctuation [Unknown]
  - Fatigue [Not Recovered/Not Resolved]
  - Feeling cold [Unknown]
  - Lethargy [Unknown]
  - Abdominal discomfort [Unknown]
  - Headache [Unknown]
  - Product use issue [Unknown]
  - Flatulence [Unknown]
  - Vitamin D decreased [Unknown]
  - Oropharyngeal pain [Unknown]
  - Insomnia [Unknown]
  - Gastrointestinal sounds abnormal [Unknown]
  - Hordeolum [Recovering/Resolving]
  - Abdominal distension [Unknown]
  - Dizziness [Unknown]
  - Skin haemorrhage [Not Recovered/Not Resolved]
  - Nausea [Unknown]
  - Neutropenia [Unknown]
  - Heart rate decreased [Unknown]
  - Oral herpes [Recovered/Resolved]

NARRATIVE: CASE EVENT DATE: 20161228
